FAERS Safety Report 9923212 (Version 1)
Quarter: 2014Q1

REPORT INFORMATION
  Report Type: Spontaneous
  Country: US (occurrence: US)
  Receive Date: 20140225
  Receipt Date: 20140225
  Transmission Date: 20141002
  Serious: No
  Sender: FDA-Public Use
  Company Number: US-AMGEN-USASP2013071259

PATIENT
  Age: 17 Year
  Sex: Female
  Weight: 49.43 kg

DRUGS (1)
  1. ENBREL [Suspect]
     Indication: JUVENILE IDIOPATHIC ARTHRITIS
     Dosage: 20 MG, EVERY TUESDAY AND FRIDAY
     Route: 058
     Dates: start: 20130801

REACTIONS (3)
  - Feeling abnormal [Unknown]
  - Injection site mass [Unknown]
  - Injection site erythema [Unknown]
